FAERS Safety Report 8794375 (Version 1)
Quarter: 2012Q4

REPORT INFORMATION
  Report Type: 
  Country: FR (occurrence: FR)
  Receive Date: 20120917
  Receipt Date: 20120917
  Transmission Date: 20130627
  Serious: Yes (Other)
  Sender: FDA-Public Use
  Company Number: FR-MYLANLABS-2012S1018294

PATIENT
  Age: 73 Year
  Sex: Male

DRUGS (5)
  1. CLOZAPINE [Suspect]
     Indication: PRODUCT USED FOR UNKNOWN INDICATION
     Route: 048
     Dates: start: 20120809, end: 20120812
  2. STALEVO [Concomitant]
     Indication: PARKINSON^S DISEASE
  3. TRIVASTAL [Concomitant]
     Indication: PARKINSON^S DISEASE
  4. AZILECT [Concomitant]
     Indication: PARKINSON^S DISEASE
  5. ALPRAZOLAM [Concomitant]
     Indication: PRODUCT USED FOR UNKNOWN INDICATION

REACTIONS (3)
  - Hallucination, visual [Recovered/Resolved]
  - Agitation [Recovered/Resolved]
  - Abnormal behaviour [Recovered/Resolved]
